FAERS Safety Report 25010099 (Version 1)
Quarter: 2025Q1

REPORT INFORMATION
  Report Type: Spontaneous
  Country: US (occurrence: US)
  Receive Date: 20250225
  Receipt Date: 20250225
  Transmission Date: 20250409
  Serious: No
  Sender: PFIZER
  Company Number: US-PFIZER INC-202500042756

PATIENT

DRUGS (2)
  1. LORLATINIB [Suspect]
     Active Substance: LORLATINIB
  2. LORLATINIB [Suspect]
     Active Substance: LORLATINIB

REACTIONS (3)
  - Nervous system disorder [Unknown]
  - Brain fog [Unknown]
  - Mental disorder [Unknown]
